FAERS Safety Report 9992693 (Version 1)
Quarter: 2014Q1

REPORT INFORMATION
  Report Type: Spontaneous
  Country: US (occurrence: US)
  Receive Date: 20140310
  Receipt Date: 20140310
  Transmission Date: 20141002
  Serious: No
  Sender: FDA-Public Use
  Company Number: US-PFIZER INC-2014067890

PATIENT
  Age: 45 Year
  Sex: Female

DRUGS (1)
  1. XELJANZ [Suspect]
     Indication: RHEUMATOID ARTHRITIS
     Dosage: UNK

REACTIONS (7)
  - Pain in extremity [Unknown]
  - Arthralgia [Unknown]
  - Tremor [Unknown]
  - Muscle spasms [Unknown]
  - Nausea [Unknown]
  - Vision blurred [Unknown]
  - Headache [Unknown]
